FAERS Safety Report 15316024 (Version 1)
Quarter: 2018Q3

REPORT INFORMATION
  Report Type: Report from Study
  Country: CA (occurrence: CA)
  Receive Date: 20180824
  Receipt Date: 20180824
  Transmission Date: 20181010
  Serious: Yes (Death, Other)
  Sender: FDA-Public Use
  Company Number: PHHY2017CA183894

PATIENT
  Age: 73 Year
  Sex: Male
  Weight: 53.61 kg

DRUGS (6)
  1. ALDACTONE [Concomitant]
     Active Substance: SPIRONOLACTONE
     Indication: PRODUCT USED FOR UNKNOWN INDICATION
     Dosage: 25 MG, QD
     Route: 065
     Dates: start: 20180125
  2. RAMIPRIL. [Suspect]
     Active Substance: RAMIPRIL
     Indication: PRODUCT USED FOR UNKNOWN INDICATION
     Dosage: UNK
     Route: 065
     Dates: end: 20180222
  3. SANDOSTATIN LAR DEPOT [Suspect]
     Active Substance: OCTREOTIDE ACETATE
     Dosage: 60 MG, Q3W (EVERY 3 WEEKS)
     Route: 030
  4. SANDOSTATIN LAR DEPOT [Suspect]
     Active Substance: OCTREOTIDE ACETATE
     Dosage: 60 MG, QMO (EVERY 4 WEEKS)
     Route: 030
  5. ALDACTONE [Concomitant]
     Active Substance: SPIRONOLACTONE
     Dosage: 37.5 MG AM ONCE A DAY (QD)
     Route: 065
  6. SANDOSTATIN LAR DEPOT [Suspect]
     Active Substance: OCTREOTIDE ACETATE
     Indication: CARCINOID TUMOUR
     Dosage: 60 MG, QMO
     Route: 030
     Dates: start: 201704

REACTIONS (35)
  - Duodenal obstruction [Unknown]
  - Weight increased [Unknown]
  - Malaise [Unknown]
  - Hypotension [Unknown]
  - Asthenia [Unknown]
  - Abdominal distension [Unknown]
  - Malignant neoplasm progression [Unknown]
  - Frequent bowel movements [Unknown]
  - Blood pressure systolic increased [Unknown]
  - Syncope [Unknown]
  - Bone pain [Unknown]
  - Hepatic failure [Unknown]
  - Peripheral swelling [Unknown]
  - Cardiac valve disease [Unknown]
  - Flushing [Unknown]
  - Oedema peripheral [Unknown]
  - Back pain [Unknown]
  - Diarrhoea [Recovering/Resolving]
  - Cardiac failure congestive [Unknown]
  - Somnolence [Unknown]
  - Decreased appetite [Unknown]
  - Ascites [Unknown]
  - Bone cancer [Unknown]
  - Body temperature decreased [Unknown]
  - Musculoskeletal pain [Unknown]
  - Death [Fatal]
  - Second primary malignancy [Unknown]
  - Blood pressure decreased [Unknown]
  - Pain in extremity [Unknown]
  - Weight decreased [Unknown]
  - Nasopharyngitis [Unknown]
  - Blood pressure systolic decreased [Unknown]
  - Peritoneal fluid analysis abnormal [Unknown]
  - Fatigue [Unknown]
  - Inappropriate schedule of drug administration [Unknown]

NARRATIVE: CASE EVENT DATE: 2017
